FAERS Safety Report 10041431 (Version 2)
Quarter: 2014Q2

REPORT INFORMATION
  Report Type: Spontaneous
  Country: GB (occurrence: GB)
  Receive Date: 20140327
  Receipt Date: 20140415
  Transmission Date: 20141212
  Serious: Yes (Hospitalization)
  Sender: FDA-Public Use
  Company Number: PHFR2014GB002390

PATIENT
  Age: 71 Year
  Sex: Male

DRUGS (6)
  1. CLOZARIL [Suspect]
     Dosage: 225 MG, DAILY
     Route: 048
     Dates: end: 20140227
  2. RANITIDINE [Concomitant]
     Dosage: 300 MG, DAILY
     Route: 048
  3. SIMVASTATIN [Concomitant]
     Dosage: 40 MG, DAILY
     Route: 048
  4. BENZHEXOL [Concomitant]
     Indication: SALIVARY HYPERSECRETION
     Dosage: 2 MG, DAILY
     Route: 048
     Dates: start: 20130924
  5. BUPRENORPHINE [Concomitant]
     Dosage: 2.5 MG, DAILY
     Route: 048
  6. CLOZARIL [Suspect]
     Dosage: UNK
     Route: 048
     Dates: start: 20010701

REACTIONS (4)
  - Urinary tract infection [Unknown]
  - Pyelonephritis [Recovered/Resolved]
  - Pneumonia [Unknown]
  - Lower respiratory tract infection [Recovered/Resolved]
